FAERS Safety Report 4870798-7 (Version None)
Quarter: 2006Q1

REPORT INFORMATION
  Report Type: 
  Country: None (occurrence: None)
  Receive Date: 20060103
  Receipt Date: 20041022
  Transmission Date: 20060701
  Serious: Yes (Hospitalization, Other)
  Sender: FDA-Public Use
  Company Number: US-MERCK-0410USA03629

PATIENT
  Age: 35 Year
  Sex: Male
  Weight: 129 kg

DRUGS (12)
  1. ZOCOR [Concomitant]
     Route: 048
  2. MINOXIDIL 2% [Concomitant]
     Route: 065
  3. NORVASC [Concomitant]
     Route: 048
  4. LISINOPRIL [Concomitant]
     Route: 048
  5. COUMADIN [Concomitant]
     Route: 065
  6. HYDROCODONE BITARTRATE [Concomitant]
     Route: 065
  7. LASIX [Concomitant]
     Route: 065
  8. ZETIA [Concomitant]
     Route: 048
  9. COREG [Concomitant]
     Route: 048
  10. VALTREX [Concomitant]
     Route: 048
  11. OXAPROZIN [Concomitant]
     Route: 065
  12. VIOXX [Suspect]
     Route: 048

REACTIONS (7)
  - CARDIOVASCULAR DISORDER [None]
  - CEREBROVASCULAR ACCIDENT [None]
  - CHEST PAIN [None]
  - CORONARY ARTERY DISEASE [None]
  - DYSPNOEA EXERTIONAL [None]
  - MYOCARDIAL INFARCTION [None]
  - RENAL FAILURE CHRONIC [None]
